FAERS Safety Report 14531892 (Version 7)
Quarter: 2019Q2

REPORT INFORMATION
  Report Type: Spontaneous
  Country: US (occurrence: US)
  Receive Date: 20180214
  Receipt Date: 20190619
  Transmission Date: 20190711
  Serious: Yes (Hospitalization)
  Sender: FDA-Public Use
  Company Number: US-VIFOR (INTERNATIONAL) INC.-VIT-2018-01625

PATIENT
  Age: 83 Year
  Sex: Male
  Weight: 86.26 kg

DRUGS (11)
  1. CALCIUM ASPARTATE [Concomitant]
     Active Substance: CALCIUM ASPARTATE
  2. ASPIRIN. [Concomitant]
     Active Substance: ASPIRIN
  3. ALLOPURINOL. [Concomitant]
     Active Substance: ALLOPURINOL
  4. DOXAZOSIN MESYLATE. [Concomitant]
     Active Substance: DOXAZOSIN MESYLATE
  5. CITALOPRAM HYDROBROMIDE. [Concomitant]
     Active Substance: CITALOPRAM HYDROBROMIDE
  6. DOK [Concomitant]
     Active Substance: DOCUSATE SODIUM
  7. CALCITRIOL. [Concomitant]
     Active Substance: CALCITRIOL
  8. FUROSEMIDE. [Concomitant]
     Active Substance: FUROSEMIDE
  9. VELTASSA [Suspect]
     Active Substance: PATIROMER
     Indication: HYPERKALAEMIA
     Route: 048
     Dates: start: 20171230
  10. VELTASSA [Suspect]
     Active Substance: PATIROMER
     Route: 048
     Dates: start: 20180130
  11. CARVEDILOL. [Concomitant]
     Active Substance: CARVEDILOL

REACTIONS (7)
  - Malaise [Unknown]
  - Hospitalisation [Unknown]
  - Constipation [Recovered/Resolved]
  - Colon cancer [Recovered/Resolved]
  - Nephrectomy [Unknown]
  - Obstruction [Recovered/Resolved]
  - Decreased appetite [Not Recovered/Not Resolved]

NARRATIVE: CASE EVENT DATE: 2017
